FAERS Safety Report 24561989 (Version 1)
Quarter: 2024Q4

REPORT INFORMATION
  Report Type: Spontaneous
  Country: TH (occurrence: TH)
  Receive Date: 20241029
  Receipt Date: 20241029
  Transmission Date: 20250115
  Serious: Yes (Hospitalization)
  Sender: PADAGIS
  Company Number: TH-PADAGIS-2024PAD01673

PATIENT

DRUGS (1)
  1. CLINDAMYCIN PHOSPHATE [Suspect]
     Active Substance: CLINDAMYCIN PHOSPHATE
     Indication: Cellulitis
     Dosage: UNK
     Route: 065

REACTIONS (2)
  - Cutaneous vasculitis [Unknown]
  - Product use in unapproved indication [Unknown]
